FAERS Safety Report 6900920-X (Version None)
Quarter: 2010Q3

REPORT INFORMATION
  Report Type: 
  Country: None (occurrence: None)
  Receive Date: 20100803
  Receipt Date: 20100729
  Transmission Date: 20110219
  Serious: Yes (Death)
  Sender: FDA-Public Use
  Company Number: A0873348A

PATIENT
  Age: 90 Year
  Sex: Female

DRUGS (3)
  1. PROMACTA [Suspect]
     Route: 048
     Dates: start: 20090601
  2. CORTICOSTEROIDS [Concomitant]
     Indication: IDIOPATHIC THROMBOCYTOPENIC PURPURA
     Dates: start: 20090518
  3. RITUXIMAB [Concomitant]
     Indication: IDIOPATHIC THROMBOCYTOPENIC PURPURA
     Dates: start: 20090529

REACTIONS (1)
  - CARDIOPULMONARY FAILURE [None]
